FAERS Safety Report 11802359 (Version 2)
Quarter: 2016Q1

REPORT INFORMATION
  Report Type: Report from Study
  Country: KR (occurrence: KR)
  Receive Date: 20151204
  Receipt Date: 20160111
  Transmission Date: 20160525
  Serious: Yes (Hospitalization)
  Sender: FDA-Public Use
  Company Number: KR-TEVA-614176ISR

PATIENT
  Age: 31 Year
  Sex: Female
  Weight: 62 kg

DRUGS (10)
  1. ABT-888 (BLINDED) [Suspect]
     Active Substance: VELIPARIB
     Indication: TRIPLE NEGATIVE BREAST CANCER
     Dosage: CHEMOTHERAPY SEGMENT 1
     Route: 048
     Dates: start: 20150730, end: 20151022
  2. GADIN [Concomitant]
     Indication: PREMEDICATION
     Dosage: EVERY PACLITAXEL AND AC CHEMOTHERAPY. ONGOING.
     Route: 042
     Dates: start: 20150730
  3. CARBOPLATIN (BLINDED) [Suspect]
     Active Substance: CARBOPLATIN
     Indication: TRIPLE NEGATIVE BREAST CANCER
     Dosage: DAY 1 OF FOUR 21-DAY CYCLES DURING CHEMOTHERAPY SEGMENT 1
     Route: 042
     Dates: start: 20150730, end: 20151002
  4. PACLITAXEL (OPEN LABEL) [Suspect]
     Active Substance: PACLITAXEL
     Indication: TRIPLE NEGATIVE BREAST CANCER
     Dosage: DAY 1 OF 12 WEEKLY CYCLES DURING CHEMOTHERAPY SEGMENT 1
     Route: 042
     Dates: start: 20150730, end: 20151016
  5. EMEND [Concomitant]
     Active Substance: APREPITANT
     Indication: PROPHYLAXIS OF NAUSEA AND VOMITING
     Dosage: ONGOING.
     Route: 048
     Dates: start: 20150825
  6. EMEND [Concomitant]
     Active Substance: APREPITANT
     Dosage: 80 MILLIGRAM DAILY; TAKEN FOR 2 DAYS AFTER THE NEXT DAY EVERY CHEMOTHERAPY. ONGOING.
     Route: 048
     Dates: start: 20150826
  7. DOXORUBICIN (OPEN LABEL) [Suspect]
     Active Substance: DOXORUBICIN
     Indication: TRIPLE NEGATIVE BREAST CANCER
     Dosage: CHEMOTHERAPY SEGMENT 2. ONGOING.
     Route: 042
     Dates: start: 20151023
  8. CYCLOPHOSPHAMIDE (OPEN LABEL) [Suspect]
     Active Substance: CYCLOPHOSPHAMIDE
     Indication: TRIPLE NEGATIVE BREAST CANCER
     Dosage: CHEMOTHERAPY SEGMENT 2. ONGOING.
     Route: 042
     Dates: start: 20151023
  9. ALOXI [Concomitant]
     Active Substance: PALONOSETRON HYDROCHLORIDE
     Indication: PREMEDICATION
     Dosage: EVERY CARBOPLATIN AND AC CHEMOTHERAPY. ONGOING.
     Route: 042
     Dates: start: 20150730
  10. DEXAMETHASONE. [Concomitant]
     Active Substance: DEXAMETHASONE
     Indication: PREMEDICATION
     Dosage: BEFORE PACLITAXEL AND AC CHEMOTHERAPY. ONGOING.
     Route: 042
     Dates: start: 20150730

REACTIONS (1)
  - Febrile neutropenia [Recovered/Resolved]

NARRATIVE: CASE EVENT DATE: 20151102
